FAERS Safety Report 5244024-3 (Version None)
Quarter: 2007Q1

REPORT INFORMATION
  Report Type: 
  Country: None (occurrence: None)
  Receive Date: 20070215
  Receipt Date: 20061218
  Transmission Date: 20070707
  Serious: Yes (Life-Threatening)
  Sender: FDA-Public Use
  Company Number: 863#3#2006-00017

PATIENT
  Age: 91 Year
  Sex: Female

DRUGS (6)
  1. IDROLAX (MACROGOL) [Suspect]
     Dosage: 10 G (10 G 1 IN 1 DAY(S); ORAL
     Route: 048
     Dates: start: 20060629, end: 20060821
  2. MEMANTINE HCL [Suspect]
     Indication: VASCULAR DEMENTIA
     Dosage: ORAL
     Route: 048
     Dates: start: 20060623, end: 20060821
  3. POTASSIUM CHLORIDE [Suspect]
     Dosage: ORAL
     Route: 048
     Dates: start: 20060624, end: 20060821
  4. DIGOXIN [Concomitant]
  5. ACENOCOUMAROL (ACENOCOUMAROL) [Concomitant]
  6. CITALOPRAM HYDROBROMIDE [Concomitant]

REACTIONS (3)
  - APNOEIC ATTACK [None]
  - CONFUSIONAL STATE [None]
  - LOCKED-IN SYNDROME [None]
